FAERS Safety Report 8585787-9 (Version None)
Quarter: 2012Q3

REPORT INFORMATION
  Report Type: 
  Country: None (occurrence: None)
  Receive Date: 20120810
  Receipt Date: 20120807
  Transmission Date: 20120928
  Serious: No
  Sender: FDA-Public Use
  Company Number: US-B.I. PHARMACEUTICALS,INC./RIDGEFIELD-2012-BP-17756BP

PATIENT
  Age: 86 Year
  Sex: Female
  Weight: 56 kg

DRUGS (19)
  1. OMEPRAZOLE [Concomitant]
     Indication: HIATUS HERNIA
     Dosage: 20 MG
     Route: 048
     Dates: start: 20100101
  2. ASPIRIN [Concomitant]
     Indication: CARDIAC DISORDER
     Dosage: 81 MG
     Route: 048
     Dates: start: 20120201
  3. GLUCOSAMINE CHONDROITIN [Concomitant]
     Indication: ARTHRALGIA
     Dosage: 1500 MG
     Route: 048
     Dates: start: 20020101
  4. TRAMADOL HCL [Concomitant]
     Indication: SCIATICA
     Dosage: 50 MG
     Route: 048
  5. SPIRIVA [Suspect]
     Dosage: 18 MCG
     Route: 048
     Dates: start: 20120807, end: 20120807
  6. CALCIUM +D [Concomitant]
     Indication: BONE DISORDER
     Dosage: 2400 MG
     Route: 048
     Dates: start: 20020101
  7. KLOR-CON [Concomitant]
     Indication: OEDEMA
     Dosage: 8 MEQ
     Route: 048
     Dates: start: 20100101
  8. MULTIVITAMIN FOR WOMEN [Concomitant]
     Indication: SUPPLEMENTATION THERAPY
     Route: 048
     Dates: start: 20020101
  9. LUTEIN [Concomitant]
     Indication: EYE DISORDER
     Dosage: 10 MG
     Route: 048
     Dates: start: 20020101
  10. SPIRIVA [Suspect]
     Indication: CHRONIC OBSTRUCTIVE PULMONARY DISEASE
     Dosage: 18 MCG
     Route: 055
     Dates: start: 20110101
  11. LOVASTATIN [Concomitant]
     Indication: BLOOD CHOLESTEROL INCREASED
     Dosage: 40 MG
     Route: 048
     Dates: start: 20050101
  12. FUROSEMIDE [Concomitant]
     Indication: OEDEMA
     Dosage: 40 MG
     Route: 048
     Dates: start: 20100101
  13. LEVOTHYROXINE SODIUM [Concomitant]
     Indication: HYPOTHYROIDISM
     Dosage: 100 MCG
     Route: 048
     Dates: start: 20020101
  14. VICODIN [Concomitant]
     Indication: SCIATICA
     Route: 048
  15. ALENDRONATE SODIUM [Concomitant]
     Indication: OSTEOPOROSIS
     Route: 048
     Dates: start: 20020101
  16. DALIRESP [Concomitant]
     Indication: CHRONIC OBSTRUCTIVE PULMONARY DISEASE
     Dosage: 500 MCG
     Route: 048
     Dates: start: 20120701
  17. DONEPEZIL HCL [Concomitant]
     Indication: DEMENTIA ALZHEIMER'S TYPE
     Dosage: 10 MG
     Route: 048
     Dates: start: 20070101
  18. VENTOLIN [Concomitant]
     Indication: CHRONIC OBSTRUCTIVE PULMONARY DISEASE
     Route: 055
  19. XANAX [Concomitant]
     Indication: DEPRESSION
     Dosage: 0.25 MG
     Route: 048

REACTIONS (2)
  - INCORRECT ROUTE OF DRUG ADMINISTRATION [None]
  - OXYGEN CONSUMPTION DECREASED [None]
